FAERS Safety Report 11341968 (Version 2)
Quarter: 2015Q4

REPORT INFORMATION
  Report Type: Spontaneous
  Country: US (occurrence: US)
  Receive Date: 20150805
  Receipt Date: 20151023
  Transmission Date: 20160304
  Serious: Yes (Hospitalization)
  Sender: FDA-Public Use
  Company Number: US-GILEAD-2015-0165926

PATIENT
  Age: 58 Year
  Sex: Male
  Weight: 99.32 kg

DRUGS (1)
  1. HARVONI [Suspect]
     Active Substance: LEDIPASVIR\SOFOSBUVIR
     Indication: RENAL DISORDER
     Dosage: 1 DF, UNK
     Route: 048
     Dates: start: 20150612, end: 20150729

REACTIONS (3)
  - Blood sodium decreased [Unknown]
  - Blood creatinine increased [Recovered/Resolved]
  - Off label use [Unknown]

NARRATIVE: CASE EVENT DATE: 20150612
